FAERS Safety Report 17814934 (Version 1)
Quarter: 2020Q2

REPORT INFORMATION
  Report Type: Spontaneous
  Country: DE (occurrence: DE)
  Receive Date: 20200522
  Receipt Date: 20200522
  Transmission Date: 20200714
  Serious: Yes (Other)
  Sender: FDA-Public Use
  Company Number: DE-SA-2020SA132758

PATIENT

DRUGS (1)
  1. DUPIXENT [Suspect]
     Active Substance: DUPILUMAB
     Indication: NEURODERMATITIS
     Dosage: 300MG,QOW
     Dates: start: 201904, end: 202001

REACTIONS (3)
  - Pyrexia [Recovering/Resolving]
  - Hallucination [Recovering/Resolving]
  - Meningitis [Recovering/Resolving]

NARRATIVE: CASE EVENT DATE: 201912
